FAERS Safety Report 17694462 (Version 1)
Quarter: 2020Q2

REPORT INFORMATION
  Report Type: Spontaneous
  Country: US (occurrence: US)
  Receive Date: 20200422
  Receipt Date: 20200422
  Transmission Date: 20200714
  Serious: Yes (Hospitalization)
  Sender: FDA-Public Use
  Company Number: US-JNJFOC-20200421452

PATIENT
  Age: 76 Year
  Sex: Male
  Weight: 169 kg

DRUGS (1)
  1. ZYTIGA [Suspect]
     Active Substance: ABIRATERONE ACETATE
     Indication: PROSTATE CANCER
     Route: 048
     Dates: start: 20151105

REACTIONS (1)
  - Vascular graft [Not Recovered/Not Resolved]

NARRATIVE: CASE EVENT DATE: 20200415
